FAERS Safety Report 7391181-9 (Version None)
Quarter: 2011Q2

REPORT INFORMATION
  Report Type: 
  Country: None (occurrence: None)
  Receive Date: 20110404
  Receipt Date: 20100508
  Transmission Date: 20111010
  Serious: No
  Sender: FDA-Public Use
  Company Number: US-PFIZER INC-2003037020

PATIENT
  Sex: Female
  Weight: 104.33 kg

DRUGS (5)
  1. ZOLOFT [Suspect]
     Indication: DEPRESSION
  2. ESCITALOPRAM [Suspect]
     Indication: ILL-DEFINED DISORDER
     Route: 048
     Dates: start: 20030601, end: 20030601
  3. ZOLOFT [Suspect]
     Indication: ANXIETY
     Dosage: 50 MG, 1X/DAY
     Route: 048
  4. ZOLOFT [Suspect]
     Indication: OBSESSIVE-COMPULSIVE DISORDER
  5. ALPRAZOLAM [Suspect]
     Indication: PANIC ATTACK
     Dosage: UNK
     Route: 048

REACTIONS (8)
  - PLANTAR FASCIITIS [None]
  - SWELLING [None]
  - PARAESTHESIA [None]
  - PAIN [None]
  - TINNITUS [None]
  - EXOSTOSIS [None]
  - AGITATION [None]
  - PANIC ATTACK [None]
